FAERS Safety Report 9470590 (Version 3)
Quarter: 2013Q4

REPORT INFORMATION
  Report Type: Spontaneous
  Country: US (occurrence: US)
  Receive Date: 20130822
  Receipt Date: 20131001
  Transmission Date: 20140711
  Serious: Yes (Other)
  Sender: FDA-Public Use
  Company Number: US-FRI-1000046807

PATIENT
  Age: 74 Year
  Sex: Female

DRUGS (13)
  1. ARMOUR THYROID [Suspect]
     Indication: THYROIDECTOMY
     Dosage: 90 MG
     Route: 048
     Dates: start: 201305, end: 201305
  2. ARMOUR THYROID [Suspect]
     Indication: THYROIDECTOMY
     Dosage: 120 MG
     Route: 048
     Dates: start: 201305, end: 2013
  3. ARMOUR THYROID [Suspect]
     Dosage: 60 MG
     Route: 048
     Dates: start: 2013
  4. RISPERIDONE [Suspect]
     Dates: start: 201307, end: 201309
  5. LAMOTRIGINE [Suspect]
     Dates: end: 2013
  6. SIMVASTATIN [Concomitant]
  7. ESTRADIOL [Concomitant]
  8. CYMBALTA [Concomitant]
  9. METFORMIN [Concomitant]
     Indication: DIABETES MELLITUS
  10. GLYBURIDE [Concomitant]
     Indication: DIABETES MELLITUS
  11. TEMAZEPAM [Concomitant]
     Indication: INSOMNIA
  12. INTEGRA [Concomitant]
  13. BENICAR [Concomitant]

REACTIONS (5)
  - Parkinson^s disease [Not Recovered/Not Resolved]
  - Tremor [Recovering/Resolving]
  - Depressed mood [Recovering/Resolving]
  - Somnolence [Recovering/Resolving]
  - Neurotransmitter level altered [Not Recovered/Not Resolved]
